FAERS Safety Report 11724415 (Version 2)
Quarter: 2015Q4

REPORT INFORMATION
  Report Type: Spontaneous
  Country: GB (occurrence: GB)
  Receive Date: 20151111
  Receipt Date: 20151118
  Transmission Date: 20160304
  Serious: Yes (Death, Hospitalization)
  Sender: FDA-Public Use
  Company Number: PHHY2015IE144505

PATIENT
  Age: 51 Year
  Sex: Male

DRUGS (4)
  1. CHLORPROMAZINE HCL [Concomitant]
     Active Substance: CHLORPROMAZINE HYDROCHLORIDE
     Indication: SCHIZOPHRENIA
     Route: 065
  2. FLUPHENAZINE DECANOATE. [Concomitant]
     Active Substance: FLUPHENAZINE DECANOATE
     Indication: SCHIZOPHRENIA
     Dosage: 25 MG
     Route: 042
  3. CLOZAPINE. [Suspect]
     Active Substance: CLOZAPINE
     Indication: SCHIZOPHRENIA
     Route: 065
  4. CLOZAPINE. [Suspect]
     Active Substance: CLOZAPINE
     Dosage: 200 MG, BID
     Route: 065

REACTIONS (9)
  - Asphyxia [Fatal]
  - Cardiac arrest [Fatal]
  - Unresponsive to stimuli [Unknown]
  - Pyrexia [Unknown]
  - Malaise [Unknown]
  - Agranulocytosis [Unknown]
  - Neutropenia [Unknown]
  - Respiratory failure [Fatal]
  - Lethargy [Unknown]
